FAERS Safety Report 8517003-8 (Version None)
Quarter: 2012Q3

REPORT INFORMATION
  Report Type: 
  Country: None (occurrence: None)
  Receive Date: 20120718
  Receipt Date: 20120704
  Transmission Date: 20120928
  Serious: Yes (Life-Threatening, Hospitalization)
  Sender: FDA-Public Use
  Company Number: NZ-MYLANLABS-2012S1013913

PATIENT
  Age: 51 Year
  Sex: Male
  Weight: 75 kg

DRUGS (6)
  1. QUETIAPINE [Suspect]
     Indication: POISONING DELIBERATE
     Route: 048
  2. QUINAPRIL [Suspect]
     Indication: POISONING DELIBERATE
     Route: 048
  3. CITALOPRAM HYDROBROMIDE [Suspect]
     Indication: POISONING DELIBERATE
     Route: 048
  4. ASPIRIN [Suspect]
     Indication: POISONING DELIBERATE
     Route: 048
  5. AMITRIPTYLINE HYDROCHLORIDE [Suspect]
     Indication: POISONING DELIBERATE
     Dosage: IN EXCESS OF 43 MG/KG (}65 X 50MG TABLETS)
     Route: 048
  6. METOPROLOL SUCCINATE [Suspect]
     Indication: POISONING DELIBERATE
     Route: 048

REACTIONS (10)
  - POISONING DELIBERATE [None]
  - CONVULSION [None]
  - ABNORMAL BEHAVIOUR [None]
  - MYDRIASIS [None]
  - INTENTIONAL OVERDOSE [None]
  - TACHYCARDIA [None]
  - HYPOTENSION [None]
  - CARDIOTOXICITY [None]
  - AGITATION [None]
  - ELECTROCARDIOGRAM QRS COMPLEX PROLONGED [None]
